FAERS Safety Report 16321927 (Version 1)
Quarter: 2019Q2

REPORT INFORMATION
  Report Type: Report from Study
  Country: BR (occurrence: BR)
  Receive Date: 20190516
  Receipt Date: 20190516
  Transmission Date: 20190711
  Serious: Yes (Disabling, Other)
  Sender: FDA-Public Use
  Company Number: BR-ASTRAZENECA-2019SE72638

PATIENT
  Age: 9 Month

DRUGS (3)
  1. SABRIL [Suspect]
     Active Substance: VIGABATRIN
     Indication: MUSCLE SPASMS
     Route: 065
  2. PALIVIZUMAB [Suspect]
     Active Substance: PALIVIZUMAB
     Indication: BRONCHOPULMONARY DYSPLASIA
     Route: 030
     Dates: start: 201805, end: 201805
  3. SABRIL [Suspect]
     Active Substance: VIGABATRIN
     Indication: EPILEPSY
     Route: 065

REACTIONS (4)
  - Motor developmental delay [Not Recovered/Not Resolved]
  - Epilepsy [Recovered/Resolved with Sequelae]
  - Infantile spasms [Recovered/Resolved with Sequelae]
  - Muscle spasms [Recovered/Resolved with Sequelae]

NARRATIVE: CASE EVENT DATE: 201805
